FAERS Safety Report 20080376 (Version 1)
Quarter: 2021Q4

REPORT INFORMATION
  Report Type: Spontaneous
  Country: US (occurrence: None)
  Receive Date: 20211116
  Receipt Date: 20211116
  Transmission Date: 20220304
  Serious: No
  Sender: FDA-Public Use
  Company Number: None

PATIENT
  Sex: Female
  Weight: 78.75 kg

DRUGS (22)
  1. IMATINIB [Suspect]
     Active Substance: IMATINIB
     Indication: Chronic myeloid leukaemia
     Dosage: FREQUENCY : DAILY;?
     Route: 048
     Dates: start: 20210930
  2. ALBUTEROL SULFATE [Concomitant]
     Active Substance: ALBUTEROL SULFATE
  3. ALLOPURINOL [Concomitant]
     Active Substance: ALLOPURINOL
  4. ALPRAZOLAM [Concomitant]
     Active Substance: ALPRAZOLAM
  5. BUPROPION [Concomitant]
     Active Substance: BUPROPION
  6. CYCLOBENZAPRINE [Concomitant]
     Active Substance: CYCLOBENZAPRINE
  7. DOXYCYCLINE [Concomitant]
     Active Substance: DOXYCYCLINE
  8. FENOFIBRATE [Concomitant]
     Active Substance: FENOFIBRATE
  9. FLONASE [Concomitant]
     Active Substance: FLUTICASONE PROPIONATE
  10. FLOVENT [Concomitant]
     Active Substance: FLUTICASONE PROPIONATE
  11. GABAPENTIN [Concomitant]
     Active Substance: GABAPENTIN
  12. GLIPIZIDE [Concomitant]
     Active Substance: GLIPIZIDE
  13. HYDROXYZINE [Concomitant]
     Active Substance: HYDROXYZINE HYDROCHLORIDE
  14. IBUPROFEN [Concomitant]
     Active Substance: IBUPROFEN
  15. LEVOTHYROXINE [Concomitant]
     Active Substance: LEVOTHYROXINE
  16. LISINOPRIL [Concomitant]
     Active Substance: LISINOPRIL
  17. LOVASTATIN [Concomitant]
     Active Substance: LOVASTATIN
  18. METFORMIN [Concomitant]
     Active Substance: METFORMIN HYDROCHLORIDE
  19. Mutlivitamin [Concomitant]
  20. NYSTATIN [Concomitant]
     Active Substance: NYSTATIN
  21. PANTOPRAZOLE [Concomitant]
     Active Substance: PANTOPRAZOLE
  22. PROCHLORPERAZINE [Concomitant]
     Active Substance: PROCHLORPERAZINE

REACTIONS (1)
  - Swelling of eyelid [None]
